FAERS Safety Report 8882050 (Version 1)
Quarter: 2012Q4

REPORT INFORMATION
  Report Type: 
  Country: DK (occurrence: DK)
  Receive Date: 20121102
  Receipt Date: 20121102
  Transmission Date: 20130627
  Serious: Yes (Hospitalization)
  Sender: FDA-Public Use
  Company Number: DK-ABBOTT-12P-044-0999592-00

PATIENT
  Sex: Female

DRUGS (7)
  1. HUMIRA [Suspect]
     Indication: CROHN^S DISEASE
     Dosage: 160mg/80mg/40mg then 40 mg every other week
     Dates: start: 20081021, end: 20081021
  2. HUMIRA [Suspect]
     Dosage: 160mg/80mg/40mg then 40 mg every other week
     Route: 058
  3. HUMIRA [Suspect]
     Dosage: 160mg/80mg/40mg then 40 mg every other week
     Route: 058
     Dates: end: 2009
  4. HUMIRA [Suspect]
     Dosage: 160mg/80mg/40mg then 40 mg every other week
     Route: 058
     Dates: start: 200912, end: 200912
  5. HUMIRA [Suspect]
     Dosage: 160mg/80mg/40mg then 40 mg every other week
     Route: 058
  6. HUMIRA [Suspect]
     Dosage: 160mg/80mg/40mg then 40 mg every other week
     Route: 058
  7. PURINETHOL [Concomitant]
     Indication: PRODUCT USED FOR UNKNOWN INDICATION
     Dates: start: 200912

REACTIONS (3)
  - Ileectomy [Unknown]
  - Abdominal pain [Unknown]
  - Diarrhoea [Unknown]
